FAERS Safety Report 4431192-6 (Version None)
Quarter: 2004Q3

REPORT INFORMATION
  Report Type: 
  Country: None (occurrence: None)
  Receive Date: 20040824
  Receipt Date: 20040811
  Transmission Date: 20050211
  Serious: Yes (Other)
  Sender: FDA-Public Use
  Company Number: PHHO2004CL11469

PATIENT
  Sex: Male

DRUGS (1)
  1. CLOZARIL [Suspect]
     Dosage: 500 MG, QD

REACTIONS (2)
  - DRUG HYPERSENSITIVITY [None]
  - INTERSTITIAL LUNG DISEASE [None]
